FAERS Safety Report 9957943 (Version 2)
Quarter: 2014Q1

REPORT INFORMATION
  Report Type: Report from Study
  Country: US (occurrence: US)
  Receive Date: 20140304
  Receipt Date: 20140304
  Transmission Date: 20141002
  Serious: No
  Sender: FDA-Public Use
  Company Number: US-ABBVIE-13P-163-1069009-00

PATIENT
  Sex: Female
  Weight: 52.21 kg

DRUGS (9)
  1. HUMIRA [Suspect]
     Indication: CROHN^S DISEASE
     Dates: start: 201204, end: 201204
  2. HUMIRA [Suspect]
     Dosage: 2 WEEKS AFTER INITIAL DOSE
     Dates: start: 201204, end: 201204
  3. HUMIRA [Suspect]
     Dosage: 4 WEEKS AFTER INITIAL DOSE
     Dates: start: 201205, end: 201210
  4. HUMIRA [Suspect]
     Dates: start: 20130207, end: 20130207
  5. HUMIRA [Suspect]
     Dates: start: 20130221, end: 20130221
  6. HUMIRA [Suspect]
     Dates: start: 20130307, end: 20130502
  7. TINCTURE OF OPIUM [Suspect]
     Indication: CROHN^S DISEASE
  8. CYMBALTA [Concomitant]
     Indication: NEURALGIA
  9. LOMOTIL [Concomitant]
     Indication: CROHN^S DISEASE

REACTIONS (5)
  - Dizziness [Recovered/Resolved]
  - Injection site pain [Recovered/Resolved]
  - Respiratory tract infection [Recovered/Resolved]
  - Upper-airway cough syndrome [Not Recovered/Not Resolved]
  - Diarrhoea [Recovered/Resolved]
